FAERS Safety Report 6753665-3 (Version None)
Quarter: 2010Q2

REPORT INFORMATION
  Report Type: 
  Country: None (occurrence: None)
  Receive Date: 20100603
  Receipt Date: 20100521
  Transmission Date: 20101027
  Serious: Yes (Hospitalization)
  Sender: FDA-Public Use
  Company Number: JP-ROCHE-668750

PATIENT
  Sex: Female

DRUGS (17)
  1. TOCILIZUMAB [Suspect]
     Indication: RHEUMATOID ARTHRITIS
     Route: 041
     Dates: start: 20081110, end: 20090507
  2. TOCILIZUMAB [Suspect]
     Route: 041
     Dates: start: 20090508, end: 20090508
  3. TOCILIZUMAB [Suspect]
     Route: 041
     Dates: start: 20090609, end: 20090609
  4. TOCILIZUMAB [Suspect]
     Route: 041
     Dates: start: 20090707, end: 20090707
  5. TOCILIZUMAB [Suspect]
     Route: 041
     Dates: start: 20090804, end: 20090804
  6. TOCILIZUMAB [Suspect]
     Route: 041
     Dates: start: 20090908, end: 20090908
  7. TOCILIZUMAB [Suspect]
     Route: 041
     Dates: start: 20091002, end: 20091002
  8. MOBIC [Suspect]
     Indication: RHEUMATOID ARTHRITIS
     Route: 048
  9. GASTER D [Suspect]
     Indication: PROPHYLAXIS
     Route: 048
  10. RHEUMATREX [Concomitant]
     Dosage: DIVIDED IN TWO DOSES.
     Route: 048
     Dates: end: 20090507
  11. RHEUMATREX [Concomitant]
     Route: 048
     Dates: start: 20090508, end: 20090706
  12. RHEUMATREX [Concomitant]
     Route: 048
     Dates: start: 20090707
  13. BONALON [Concomitant]
     Route: 048
  14. FOLIAMIN [Concomitant]
     Dosage: FORM: PERORAL AGENT
     Route: 048
  15. RHYTHMY [Concomitant]
     Route: 048
  16. ONEALFA [Concomitant]
     Route: 048
  17. MAGLAX [Concomitant]
     Route: 048
     Dates: start: 20090908

REACTIONS (1)
  - PERITONITIS BACTERIAL [None]
